FAERS Safety Report 8082399-0 (Version None)
Quarter: 2012Q1

REPORT INFORMATION
  Report Type: 
  Country: None (occurrence: None)
  Receive Date: 20120127
  Receipt Date: 20110225
  Transmission Date: 20120608
  Serious: No
  Sender: FDA-Public Use
  Company Number: US-ABBOTT-11P-163-0706183-00

PATIENT
  Sex: Male
  Weight: 90.8 kg

DRUGS (16)
  1. TEMAZEPAM [Concomitant]
     Indication: INSOMNIA
  2. HUMIRA [Suspect]
  3. CRESTOR [Concomitant]
     Indication: BLOOD CHOLESTEROL INCREASED
  4. NIACIN [Concomitant]
     Indication: HIGH DENSITY LIPOPROTEIN DECREASED
  5. METOPROLOL TARTRATE [Concomitant]
     Indication: ATRIAL FIBRILLATION
  6. VITAMIN B COMPLEX CAP [Concomitant]
     Indication: VITAMIN SUPPLEMENTATION
  7. TRAZODONE HCL [Concomitant]
     Indication: DEPRESSION
  8. FISH OIL [Concomitant]
     Indication: MEDICAL DIET
  9. HUMIRA [Suspect]
     Indication: CROHN'S DISEASE
     Dosage: 160 MG LOADING DOSE
     Dates: start: 20110127, end: 20110127
  10. METOPROLOL TARTRATE [Concomitant]
     Indication: CORONARY ARTERY OCCLUSION
  11. PROPAFENONE HCL [Concomitant]
     Indication: ATRIAL FIBRILLATION
  12. VITAMIN B-12 [Concomitant]
     Indication: VITAMIN SUPPLEMENTATION
  13. HUMIRA [Suspect]
     Dosage: 80 MG LOADING DOSE
     Dates: start: 20110210, end: 20110210
  14. ASPIRIN [Concomitant]
     Indication: ISCHAEMIC HEART DISEASE PROPHYLAXIS
  15. IMURAN [Concomitant]
     Indication: CROHN'S DISEASE
  16. MULTI-VITAMINS [Concomitant]
     Indication: VITAMIN SUPPLEMENTATION

REACTIONS (3)
  - ARTHRALGIA [None]
  - INFLUENZA LIKE ILLNESS [None]
  - MYALGIA [None]
